FAERS Safety Report 8296242-8 (Version None)
Quarter: 2012Q2

REPORT INFORMATION
  Report Type: 
  Country: None (occurrence: None)
  Receive Date: 20120418
  Receipt Date: 20120409
  Transmission Date: 20120825
  Serious: Yes (Other)
  Sender: FDA-Public Use
  Company Number: CHPA2012US001981

PATIENT
  Age: 42 Year
  Sex: Female

DRUGS (1)
  1. EXCEDRIN (MIGRAINE) [Suspect]
     Indication: MIGRAINE
     Dosage: 2 DF, UNK
     Route: 048
     Dates: start: 20110701, end: 20120101

REACTIONS (7)
  - DIARRHOEA [None]
  - ABDOMINAL PAIN UPPER [None]
  - CONVULSION [None]
  - AMNESIA [None]
  - HYPERTENSION [None]
  - EPISTAXIS [None]
  - VOMITING [None]
